FAERS Safety Report 6346456-9 (Version None)
Quarter: 2009Q3

REPORT INFORMATION
  Report Type: 
  Country: None (occurrence: None)
  Receive Date: 20090821
  Receipt Date: 20090612
  Transmission Date: 20100115
  Serious: No
  Sender: FDA-Public Use
  Company Number: 8048116

PATIENT
  Age: 58 Year
  Sex: Male
  Weight: 78.1 kg

DRUGS (5)
  1. CIMZIA [Suspect]
     Indication: CROHN'S DISEASE
     Dosage: 400 MG SC
     Route: 058
     Dates: start: 20090301
  2. HYDROCODONE [Concomitant]
  3. ASACOL [Concomitant]
  4. OMEPRAZOLE [Concomitant]
  5. NIFEDIPINE [Concomitant]

REACTIONS (1)
  - MALAISE [None]
